FAERS Safety Report 8913543 (Version 1)
Quarter: 2012Q4

REPORT INFORMATION
  Report Type: 
  Country: IR (occurrence: IR)
  Receive Date: 20121119
  Receipt Date: 20121119
  Transmission Date: 20130627
  Serious: Yes (Death)
  Sender: FDA-Public Use
  Company Number: IR-JNJFOC-20121108186

PATIENT
  Age: 90 Year
  Sex: Female

DRUGS (6)
  1. REMINYL [Suspect]
     Indication: DEMENTIA ALZHEIMER^S TYPE
     Route: 048
  2. REMINYL [Suspect]
     Indication: DEMENTIA ALZHEIMER^S TYPE
     Dosage: from 3 months before death
     Route: 048
  3. EBIXA [Suspect]
     Indication: DEMENTIA ALZHEIMER^S TYPE
     Route: 065
  4. FUROSEMIDE [Concomitant]
     Indication: CARDIAC DISORDER
     Route: 065
  5. LANOXIN [Concomitant]
     Indication: CARDIAC DISORDER
     Route: 065
  6. LEVOTHYROXINE [Concomitant]
     Route: 065

REACTIONS (3)
  - Ascites [Fatal]
  - Blood creatinine increased [Unknown]
  - Blood urea increased [Unknown]
